FAERS Safety Report 5310590-2 (Version None)
Quarter: 2007Q1

REPORT INFORMATION
  Report Type: 
  Country: None (occurrence: None)
  Receive Date: 20070201
  Receipt Date: 20061102
  Transmission Date: 20070707
  Serious: No
  Sender: FDA-Public Use
  Company Number: 258238

PATIENT
  Age: 59 Year
  Sex: Female
  Weight: 72.6 kg

DRUGS (2)
  1. LEVEMIR [Suspect]
     Indication: DIABETES MELLITUS INSULIN-DEPENDENT
     Dosage: 18 IU, BID, SUBCUTANEOUS
     Route: 058
     Dates: start: 20060101
  2. NOVOLOG FLEXPEN (INSULIN ASPART) [Concomitant]

REACTIONS (1)
  - BLOOD GLUCOSE INCREASED [None]
